FAERS Safety Report 6674473-8 (Version None)
Quarter: 2010Q2

REPORT INFORMATION
  Report Type: 
  Country: None (occurrence: None)
  Receive Date: 20100409
  Receipt Date: 20100406
  Transmission Date: 20101027
  Serious: Yes (Death)
  Sender: FDA-Public Use
  Company Number: PHHY2010US21569

PATIENT
  Sex: Male

DRUGS (2)
  1. EXJADE [Suspect]
     Indication: LYMPHATIC SYSTEM NEOPLASM
     Dosage: 500 MG, QD
     Route: 048
     Dates: start: 20090422
  2. EXJADE [Suspect]
     Indication: HAEMATOPOIETIC NEOPLASM

REACTIONS (1)
  - DEATH [None]
